FAERS Safety Report 4430986-0 (Version None)
Quarter: 2004Q3

REPORT INFORMATION
  Report Type: 
  Country: None (occurrence: None)
  Receive Date: 20040824
  Receipt Date: 20040817
  Transmission Date: 20050211
  Serious: Yes (Hospitalization)
  Sender: FDA-Public Use
  Company Number: ES-JNJFOC-20040708008

PATIENT
  Age: 40 Year
  Sex: Female

DRUGS (3)
  1. REMICADE [Suspect]
     Indication: ENTEROCUTANEOUS FISTULA
     Route: 042
  2. REMICADE [Suspect]
     Indication: INFLAMMATORY BOWEL DISEASE
     Dosage: HAS RECEIVED 4 DOSES
     Route: 042
  3. CEMIDON [Concomitant]
     Indication: PROPHYLAXIS
     Dosage: DURATION: 9 MONTHS
     Route: 065

REACTIONS (7)
  - ALOPECIA [None]
  - APHONIA [None]
  - DEPRESSION [None]
  - DYSPHONIA [None]
  - HERPETIC STOMATITIS [None]
  - OESOPHAGEAL ULCER [None]
  - PSORIASIS [None]
